FAERS Safety Report 4726584-1 (Version None)
Quarter: 2005Q3

REPORT INFORMATION
  Report Type: 
  Country: None (occurrence: None)
  Receive Date: 20050726
  Receipt Date: 20050713
  Transmission Date: 20060218
  Serious: Yes (Death)
  Sender: FDA-Public Use
  Company Number: 2005104197

PATIENT
  Age: 68 Year
  Sex: Female

DRUGS (4)
  1. METHYLPREDNISOLONE [Suspect]
     Indication: MICROSCOPIC POLYANGIITIS
     Dosage: 1 GRAM (DAILY FOR 3 DAYS), INTRAVENOUS
     Route: 042
  2. METHYLPREDNISOLONE [Suspect]
     Indication: SJOGREN'S SYNDROME
     Dosage: 1 GRAM (DAILY FOR 3 DAYS), INTRAVENOUS
     Route: 042
  3. PREDNISONE [Suspect]
     Indication: MICROSCOPIC POLYANGIITIS
     Dosage: (1.2 MG/KG, DAILY)
     Dates: end: 20000101
  4. PREDNISONE [Suspect]
     Indication: SJOGREN'S SYNDROME
     Dosage: (1.2 MG/KG, DAILY)
     Dates: end: 20000101

REACTIONS (9)
  - BACTERIAL INFECTION [None]
  - BLOOD BETA-D-GLUCAN INCREASED [None]
  - BLOOD LACTATE DEHYDROGENASE INCREASED [None]
  - CANDIDIASIS [None]
  - PAROTITIS [None]
  - PNEUMOCYSTIS JIROVECI PNEUMONIA [None]
  - PNEUMONITIS [None]
  - RESPIRATORY FAILURE [None]
  - STOMATITIS [None]
